FAERS Safety Report 7905675-8 (Version None)
Quarter: 2011Q4

REPORT INFORMATION
  Report Type: 
  Country: None (occurrence: None)
  Receive Date: 20111110
  Receipt Date: 20111107
  Transmission Date: 20120403
  Serious: No
  Sender: FDA-Public Use
  Company Number: US-BIOGENIDEC-2011BI042522

PATIENT
  Sex: Female

DRUGS (4)
  1. TYSABRI [Suspect]
     Indication: MULTIPLE SCLEROSIS
     Route: 042
     Dates: start: 20110610, end: 20110901
  2. TYSABRI [Suspect]
     Route: 042
     Dates: start: 20091009, end: 20101012
  3. AVONEX [Concomitant]
     Indication: MULTIPLE SCLEROSIS
     Route: 030
     Dates: start: 19981001
  4. TYSABRI [Suspect]
     Route: 042
     Dates: start: 20070209, end: 20080711

REACTIONS (1)
  - DRUG INEFFECTIVE [None]
